FAERS Safety Report 6411373-2 (Version None)
Quarter: 2009Q4

REPORT INFORMATION
  Report Type: 
  Country: None (occurrence: None)
  Receive Date: 20091020
  Receipt Date: 20091007
  Transmission Date: 20100525
  Serious: Yes (Hospitalization, Other)
  Sender: FDA-Public Use
  Company Number: 2009AC000023

PATIENT
  Age: 69 Year
  Sex: Female

DRUGS (33)
  1. DIGOXIN [Suspect]
     Indication: ATRIAL FIBRILLATION
     Dosage: 0.125 MG; QD; PO
     Route: 048
  2. MIRTAZAPINE [Concomitant]
  3. MEGESTROL ACETATE [Concomitant]
  4. NEXIUM [Concomitant]
  5. WARFARIN SODIUM [Concomitant]
  6. PANTOPRAZOLE SODIUM [Concomitant]
  7. FUROSEMIDE [Concomitant]
  8. PREDNISOLONE [Concomitant]
  9. FLUCONAZOLE [Concomitant]
  10. NYSTATIN [Concomitant]
  11. CYCLOPHOSPHAMIDE [Concomitant]
  12. ONDANSETRON [Concomitant]
  13. AMLODIPINE BESYLATE [Concomitant]
  14. PROPOXYPHEN-APAP [Concomitant]
  15. METOPROLOL [Concomitant]
  16. LISINOPRIL [Concomitant]
  17. LEVAQUIN [Concomitant]
  18. PROPAFENONE HCL [Concomitant]
  19. PATANOL [Concomitant]
  20. MECLIZINE [Concomitant]
  21. MEPHYTON [Concomitant]
  22. HYDROXYCHLOROQUINE SULFATE [Concomitant]
  23. VANCOMYCIN [Concomitant]
  24. PROTONIX [Concomitant]
  25. CIPROFLOXACIN [Concomitant]
  26. RISPERDAL [Concomitant]
  27. MOMETASONE FUROATE [Concomitant]
  28. METRONIDAZOLE [Concomitant]
  29. CEFDINIR [Concomitant]
  30. VALTREX [Concomitant]
  31. LYRICA [Concomitant]
  32. HYDROCODONE/APA [Concomitant]
  33. TAMIFLU [Concomitant]

REACTIONS (30)
  - ANAEMIA OF CHRONIC DISEASE [None]
  - ANXIETY [None]
  - ASTHENIA [None]
  - ATELECTASIS [None]
  - BLOOD UREA INCREASED [None]
  - BODY TEMPERATURE INCREASED [None]
  - CARDIAC DISORDER [None]
  - CARDIOMEGALY [None]
  - CEREBROVASCULAR ACCIDENT [None]
  - CHEST PAIN [None]
  - DECREASED APPETITE [None]
  - DIARRHOEA [None]
  - DIZZINESS [None]
  - ELECTROCARDIOGRAM ST SEGMENT DEPRESSION [None]
  - FALL [None]
  - FATIGUE [None]
  - GAIT DISTURBANCE [None]
  - HAEMATURIA [None]
  - HYPOKALAEMIA [None]
  - NAUSEA [None]
  - NECK PAIN [None]
  - OESOPHAGEAL CANDIDIASIS [None]
  - PLEURAL EFFUSION [None]
  - PRODUCTIVE COUGH [None]
  - RASH [None]
  - SYNCOPE [None]
  - THROMBOCYTOPENIA [None]
  - URINARY BLADDER HAEMORRHAGE [None]
  - VISUAL IMPAIRMENT [None]
  - WEIGHT DECREASED [None]
